FAERS Safety Report 5421526-8 (Version None)
Quarter: 2007Q3

REPORT INFORMATION
  Report Type: 
  Country: None (occurrence: None)
  Receive Date: 20070817
  Receipt Date: 20070807
  Transmission Date: 20080115
  Serious: Yes (Other)
  Sender: FDA-Public Use
  Company Number: B0483366A

PATIENT
  Age: 43 Year
  Sex: Male

DRUGS (3)
  1. LITHIUM SALT (FORMULATION UNKNOWN) (GENERIC) (LITHIUM SALT) [Suspect]
  2. HALOPERIDOL [Suspect]
  3. ZOTEPINE (FORMULATION UNKNOWN) (ZOTEPINE) [Suspect]

REACTIONS (2)
  - CSF TEST ABNORMAL [None]
  - NEUROLEPTIC MALIGNANT SYNDROME [None]
